FAERS Safety Report 7623293-6 (Version None)
Quarter: 2011Q3

REPORT INFORMATION
  Report Type: 
  Country: None (occurrence: None)
  Receive Date: 20110720
  Receipt Date: 20110714
  Transmission Date: 20111222
  Serious: Yes (Other)
  Sender: FDA-Public Use
  Company Number: US-PFIZER INC-2011156806

PATIENT
  Sex: Female

DRUGS (7)
  1. POTASSIUM [Concomitant]
     Dosage: UNK
  2. DRONEDARONE [Suspect]
     Indication: ATRIAL FIBRILLATION
     Dosage: 400 MG, 2X/DAY
     Dates: start: 20110701
  3. SOTALOL [Concomitant]
     Dosage: UNK
     Dates: end: 20110601
  4. LISINOPRIL [Suspect]
     Dosage: UNK
  5. AMIODARONE HCL [Suspect]
     Dosage: UNK,
     Dates: start: 20110601, end: 20110601
  6. METOPROLOL TARTRATE [Suspect]
     Dosage: 50 MG, UNK
  7. METOPROLOL TARTRATE [Suspect]
     Dosage: 25 MG, UNK

REACTIONS (11)
  - ARRHYTHMIA [None]
  - WEIGHT INCREASED [None]
  - DRUG INTOLERANCE [None]
  - HYPERHIDROSIS [None]
  - DYSPNOEA [None]
  - NAUSEA [None]
  - OEDEMA PERIPHERAL [None]
  - DRUG DOSE OMISSION [None]
  - SYNCOPE [None]
  - ABDOMINAL DISTENSION [None]
  - FEELING ABNORMAL [None]
